FAERS Safety Report 10405636 (Version 3)
Quarter: 2017Q3

REPORT INFORMATION
  Report Type: Spontaneous
  Country: US (occurrence: US)
  Receive Date: 20140821
  Receipt Date: 20170918
  Transmission Date: 20171127
  Serious: Yes (Hospitalization)
  Sender: FDA-Public Use
  Company Number: US-H14001-14-00388

PATIENT
  Age: 43 Year
  Sex: Male

DRUGS (7)
  1. RIFAMPIN. [Interacting]
     Active Substance: RIFAMPIN
     Route: 065
  2. DOXYCYCLINE. [Concomitant]
     Active Substance: DOXYCYCLINE
     Indication: Q FEVER
     Route: 065
  3. DOXYCYCLINE. [Concomitant]
     Active Substance: DOXYCYCLINE
     Route: 065
  4. RIFAMPIN. [Interacting]
     Active Substance: RIFAMPIN
     Indication: Q FEVER
     Route: 065
  5. HYDROXYCHLOROQUINE [Interacting]
     Active Substance: HYDROXYCHLOROQUINE
     Route: 065
  6. CIPROFLOXACIN. [Interacting]
     Active Substance: CIPROFLOXACIN
     Indication: Q FEVER
     Route: 065
  7. HYDROXYCHLOROQUINE [Suspect]
     Active Substance: HYDROXYCHLOROQUINE
     Indication: Q FEVER
     Route: 065

REACTIONS (2)
  - Drug interaction [Recovered/Resolved]
  - Acute psychosis [Recovered/Resolved]
